FAERS Safety Report 4869276-0 (Version None)
Quarter: 2005Q4

REPORT INFORMATION
  Report Type: 
  Country: None (occurrence: None)
  Receive Date: 20051230
  Receipt Date: 20051116
  Transmission Date: 20060501
  Serious: Yes (Death, Life-Threatening)
  Sender: FDA-Public Use
  Company Number: PHBS2005JP16942

PATIENT
  Age: 3 Year
  Sex: Male

DRUGS (4)
  1. SANDIMMUNE [Suspect]
     Indication: STEM CELL TRANSPLANT
     Route: 065
  2. PREDNISOLONE [Suspect]
     Indication: STEM CELL TRANSPLANT
     Route: 065
  3. FLUDARABINE PHOSPHATE [Concomitant]
     Indication: STEM CELL TRANSPLANT
     Dosage: 125 MG/M2
     Route: 065
  4. MELPHALAN [Concomitant]
     Indication: STEM CELL TRANSPLANT
     Dosage: 140 MG/M2
     Route: 065

REACTIONS (5)
  - CARDIAC FAILURE ACUTE [None]
  - GASTROINTESTINAL HAEMORRHAGE [None]
  - HAEMODIALYSIS [None]
  - MULTI-ORGAN FAILURE [None]
  - RENAL FAILURE [None]
